FAERS Safety Report 14333604 (Version 2)
Quarter: 2018Q1

REPORT INFORMATION
  Report Type: Report from Study
  Country: US (occurrence: US)
  Receive Date: 20171228
  Receipt Date: 20180116
  Transmission Date: 20180509
  Serious: Yes (Hospitalization, Other)
  Sender: FDA-Public Use
  Company Number: US-ARIAD PHARMACEUTICALS, INC-2017US009169

PATIENT
  Sex: Female
  Weight: 40 kg

DRUGS (1)
  1. PONATINIB [Suspect]
     Active Substance: PONATINIB
     Indication: ACUTE LYMPHOCYTIC LEUKAEMIA RECURRENT
     Dosage: 45 MG, QD
     Route: 048
     Dates: start: 20170427

REACTIONS (12)
  - Cough [Unknown]
  - Hypomagnesaemia [Unknown]
  - Leukopenia [Unknown]
  - Graft versus host disease in skin [Recovered/Resolved]
  - Marrow hyperplasia [Unknown]
  - Rash [Unknown]
  - Neutropenia [Unknown]
  - Pruritus [Unknown]
  - Anaemia [Unknown]
  - Stem cell transplant [Unknown]
  - Graft versus host disease in liver [Recovered/Resolved]
  - Liver function test increased [Recovered/Resolved]
